FAERS Safety Report 9289295 (Version 2)
Quarter: 2013Q2

REPORT INFORMATION
  Report Type: Spontaneous
  Country: None (occurrence: US)
  Receive Date: 20130514
  Receipt Date: 20130626
  Transmission Date: 20140414
  Serious: Yes (Hospitalization, Disabling, Other)
  Sender: FDA-Public Use
  Company Number: US-TEVA-404580USA

PATIENT
  Age: 41 Year
  Sex: Female
  Weight: 62.65 kg

DRUGS (2)
  1. KARIVA [Suspect]
     Indication: ORAL CONTRACEPTION
     Dosage: 0.15/0.02MG AND 0.01 MG
     Route: 048
     Dates: start: 20090101, end: 20120404
  2. VALTREX [Concomitant]
     Indication: HERPES OPHTHALMIC
     Dosage: 500 MILLIGRAM DAILY;
     Route: 048

REACTIONS (6)
  - Cerebrovascular accident [Recovering/Resolving]
  - Cerebral infarction [Recovering/Resolving]
  - Asthenia [Recovering/Resolving]
  - Aphasia [Recovering/Resolving]
  - Herpes ophthalmic [Unknown]
  - Hemiparesis [Recovering/Resolving]
